FAERS Safety Report 6580616-7 (Version None)
Quarter: 2010Q1

REPORT INFORMATION
  Report Type: 
  Country: None (occurrence: None)
  Receive Date: 20100212
  Receipt Date: 20100203
  Transmission Date: 20100710
  Serious: Yes (Other)
  Sender: FDA-Public Use
  Company Number: US-BAYER-200939329NA

PATIENT
  Age: 30 Year
  Sex: Female
  Weight: 50 kg

DRUGS (1)
  1. MIRENA [Suspect]
     Indication: CONTRACEPTION
     Dosage: CONTINUOUS
     Route: 015
     Dates: start: 20080522, end: 20090611

REACTIONS (5)
  - ABDOMINAL DISCOMFORT [None]
  - MENSTRUATION IRREGULAR [None]
  - PELVIC PAIN [None]
  - UTERINE PERFORATION [None]
  - VAGINAL HAEMORRHAGE [None]
